FAERS Safety Report 24213060 (Version 1)
Quarter: 2024Q3

REPORT INFORMATION
  Report Type: Report from Study
  Country: DE (occurrence: DE)
  Receive Date: 20240815
  Receipt Date: 20240815
  Transmission Date: 20241016
  Serious: Yes (Other)
  Sender: PFIZER
  Company Number: DE-PFIZER INC-202400233594

PATIENT
  Age: 17 Year
  Sex: Male

DRUGS (7)
  1. CRIZOTINIB [Suspect]
     Active Substance: CRIZOTINIB
     Indication: Anaplastic large cell lymphoma T- and null-cell types
     Dosage: 260 MG/M2, DAILY
     Route: 048
  2. CRIZOTINIB [Suspect]
     Active Substance: CRIZOTINIB
     Dosage: 100 MG/M2, DAILY
     Route: 048
  3. VINBLASTINE [Suspect]
     Active Substance: VINBLASTINE
     Indication: Anaplastic large cell lymphoma T- and null-cell types
     Dosage: 5.2 MG/M2, PER WEEK FOR 10 WEEKS
  4. DEXAMETHASONE [Concomitant]
     Active Substance: DEXAMETHASONE
     Indication: Disease progression
     Dosage: 10 MG/M2/D, 5 DAYS EVERY 4 WEEKS
  5. METHOTREXATE [Concomitant]
     Active Substance: METHOTREXATE
  6. CYTARABINE [Concomitant]
     Active Substance: CYTARABINE
  7. PREDNISOLONE [Concomitant]
     Active Substance: PREDNISOLONE

REACTIONS (6)
  - Thrombocytopenia [Unknown]
  - Gastrointestinal haemorrhage [Unknown]
  - Neutropenia [Unknown]
  - Febrile neutropenia [Unknown]
  - Hepatotoxicity [Unknown]
  - Nausea [Unknown]
